FAERS Safety Report 8272647-6 (Version None)
Quarter: 2012Q2

REPORT INFORMATION
  Report Type: 
  Country: None (occurrence: None)
  Receive Date: 20120410
  Receipt Date: 20120405
  Transmission Date: 20120825
  Serious: Yes (Death, Other)
  Sender: FDA-Public Use
  Company Number: US-ELI_LILLY_AND_COMPANY-US201204001844

PATIENT
  Sex: Male

DRUGS (2)
  1. HUMALOG MIX 75/25 [Suspect]
     Indication: DIABETES MELLITUS
     Dosage: 200 U, QD
     Dates: start: 20010101, end: 20120403
  2. ORAL ANTIDIABETICS [Concomitant]
     Indication: DIABETES MELLITUS
     Dosage: UNK
     Dates: end: 20120403

REACTIONS (3)
  - MYOCARDIAL INFARCTION [None]
  - STENT PLACEMENT [None]
  - HYPERTENSION [None]
